FAERS Safety Report 17955627 (Version 1)
Quarter: 2020Q2

REPORT INFORMATION
  Report Type: Spontaneous
  Country: US (occurrence: US)
  Receive Date: 20200626
  Receipt Date: 20200626
  Transmission Date: 20200714
  Serious: Yes (Other)
  Sender: FDA-Public Use
  Company Number: None

PATIENT
  Age: 67 Year
  Sex: Male
  Weight: 99 kg

DRUGS (4)
  1. GABAPENTIN. [Concomitant]
     Active Substance: GABAPENTIN
  2. B COMPLEX CAPSULE [Concomitant]
  3. VITAMIN C 500MG TABLET [Concomitant]
  4. ENOXAPARIN [Suspect]
     Active Substance: ENOXAPARIN
     Indication: DEEP VEIN THROMBOSIS
     Dosage: ?          QUANTITY:1 INJECTION(S);?
     Route: 058

REACTIONS (2)
  - Product substitution issue [None]
  - Syringe issue [None]

NARRATIVE: CASE EVENT DATE: 20200615
